FAERS Safety Report 8393260-6 (Version None)
Quarter: 2012Q2

REPORT INFORMATION
  Report Type: 
  Country: None (occurrence: None)
  Receive Date: 20120529
  Receipt Date: 20120523
  Transmission Date: 20120825
  Serious: Yes (Other)
  Sender: FDA-Public Use
  Company Number: US-PFIZER INC-2012083114

PATIENT
  Age: 28 Year
  Sex: Male

DRUGS (4)
  1. BUSPIRONE HCL [Interacting]
     Dosage: UNK
  2. LINEZOLID [Suspect]
     Dosage: UNK
  3. MEPERIDINE HCL [Concomitant]
     Indication: CHILLS
     Dosage: ONE DOSE
  4. VANCOMYCIN HYDROCHLORIDE [Concomitant]
     Dosage: UNK

REACTIONS (3)
  - DRUG INTERACTION [None]
  - RENAL FAILURE ACUTE [None]
  - SEROTONIN SYNDROME [None]
